FAERS Safety Report 4411968-1 (Version None)
Quarter: 2004Q3

REPORT INFORMATION
  Report Type: 
  Country: None (occurrence: None)
  Receive Date: 20040727
  Receipt Date: 20040716
  Transmission Date: 20050211
  Serious: Yes (Hospitalization)
  Sender: FDA-Public Use
  Company Number: 04P-044-0267400-00

PATIENT
  Age: 83 Year
  Sex: Male

DRUGS (10)
  1. MAVIK [Suspect]
     Indication: CARDIAC FAILURE CONGESTIVE
     Dosage: 2 MG, 1 IN 1 D
     Dates: end: 20040618
  2. POTASSIUM CHLORIDE [Concomitant]
  3. FUROSEMIDE [Concomitant]
  4. SPIRONOLACTONE [Concomitant]
  5. ASPIRIN [Concomitant]
  6. IMIPRAMINE HCL [Concomitant]
  7. FINASTERIDE [Concomitant]
  8. ALFUZOSIN [Concomitant]
  9. NIZATIDINE [Concomitant]
  10. CARVEDILOL [Concomitant]

REACTIONS (4)
  - DYSPNOEA [None]
  - OEDEMA [None]
  - PHARYNGEAL OEDEMA [None]
  - SENSATION OF FOREIGN BODY [None]
